FAERS Safety Report 9360311 (Version 1)
Quarter: 2013Q2

REPORT INFORMATION
  Report Type: Spontaneous
  Country: US (occurrence: None)
  Receive Date: 20130620
  Receipt Date: 20130620
  Transmission Date: 20140414
  Serious: Yes (Hospitalization)
  Sender: FDA-Public Use
  Company Number: None

PATIENT
  Age: 48 Year
  Sex: Male
  Weight: 60 kg

DRUGS (2)
  1. CARBOPLATIN [Suspect]
     Dates: end: 20130603
  2. TAXOL [Suspect]
     Dates: end: 20130603

REACTIONS (2)
  - Nausea [None]
  - Vomiting [None]
